FAERS Safety Report 18630230 (Version 2)
Quarter: 2021Q2

REPORT INFORMATION
  Report Type: Other
  Country: IT (occurrence: IT)
  Receive Date: 20201217
  Receipt Date: 20210503
  Transmission Date: 20210717
  Serious: Yes (Other)
  Sender: FDA-Public Use
  Company Number: IT-ROCHE-2734115

PATIENT
  Age: 10 Year
  Sex: Female

DRUGS (6)
  1. GANCICLOVIR. [Suspect]
     Active Substance: GANCICLOVIR
     Indication: ENCEPHALITIS CYTOMEGALOVIRUS
     Route: 065
  2. FOSCARNET [Suspect]
     Active Substance: FOSCARNET
     Indication: ENCEPHALITIS CYTOMEGALOVIRUS
     Dosage: 1800 MG/KG/DAY
     Route: 065
  3. CYTOTECT [Suspect]
     Active Substance: HUMAN CYTOMEGALOVIRUS IMMUNE GLOBULIN
     Indication: ENCEPHALITIS CYTOMEGALOVIRUS
     Dosage: 200 U/KG/ DOSE, FOR FIVE DAYS EVERY WEEK
     Route: 065
  4. VALGANCICLOVIR. [Suspect]
     Active Substance: VALGANCICLOVIR
     Indication: ENCEPHALITIS CYTOMEGALOVIRUS
     Route: 065
  5. MYCOPHENOLATE MOFETIL. [Suspect]
     Active Substance: MYCOPHENOLATE MOFETIL
     Indication: PROPHYLAXIS AGAINST GRAFT VERSUS HOST DISEASE
     Route: 065
  6. TACROLIMUS. [Suspect]
     Active Substance: TACROLIMUS
     Indication: PROPHYLAXIS AGAINST GRAFT VERSUS HOST DISEASE
     Route: 065

REACTIONS (8)
  - Off label use [Unknown]
  - Human herpesvirus 6 infection [Unknown]
  - Neutropenia [Recovered/Resolved]
  - Epstein-Barr virus infection [Unknown]
  - Drug resistance [Unknown]
  - Renal impairment [Recovered/Resolved]
  - BK virus infection [Unknown]
  - Thrombocytopenia [Recovered/Resolved]
